FAERS Safety Report 9424558 (Version 2)
Quarter: 2014Q1

REPORT INFORMATION
  Report Type: Report from Study
  Country: US (occurrence: US)
  Receive Date: 20130729
  Receipt Date: 20140328
  Transmission Date: 20141002
  Serious: Yes (Other)
  Sender: FDA-Public Use
  Company Number: US-NOVOPROD-383619

PATIENT
  Age: 63 Year
  Sex: Female
  Weight: 65.8 kg

DRUGS (9)
  1. LIRAGLUTIDE FLEXPEN [Suspect]
     Indication: GLUCOSE TOLERANCE IMPAIRED
     Dosage: 0.6 MG, QD
     Route: 058
     Dates: start: 20100924, end: 20101118
  2. LIRAGLUTIDE FLEXPEN [Suspect]
     Dosage: 1.2 MG, QD
     Route: 058
     Dates: start: 20101118, end: 20101125
  3. LIRAGLUTIDE FLEXPEN [Suspect]
     Dosage: 1.8 MG, QD
     Route: 058
     Dates: start: 20101125, end: 20110225
  4. SYNTHROID [Concomitant]
     Indication: HYPOTHYROIDISM
     Dosage: 100 ?G QD
     Route: 048
  5. MEVACOR [Concomitant]
     Indication: DYSLIPIDAEMIA
     Dosage: 40 MG QD
     Route: 048
  6. ZIAC                               /01166101/ [Concomitant]
     Indication: HYPERTENSION
     Dosage: 1 2.5MG/6.25MG TAB QD
     Route: 048
  7. ARTIFICIAL TEARS                   /00445101/ [Concomitant]
     Indication: PRODUCT USED FOR UNKNOWN INDICATION
     Dosage: AS NEEDED
     Route: 047
  8. ARISTOCORT                         /00031901/ [Concomitant]
     Indication: PRODUCT USED FOR UNKNOWN INDICATION
     Dosage: AS NEEDED
     Route: 061
  9. NIZORAL [Concomitant]
     Indication: PRODUCT USED FOR UNKNOWN INDICATION
     Dosage: ANTIFUNGAL SHAMPOO
     Route: 061

REACTIONS (1)
  - Invasive ductal breast carcinoma [Unknown]
